FAERS Safety Report 9880522 (Version 1)
Quarter: 2014Q1

REPORT INFORMATION
  Report Type: Spontaneous
  Country: US (occurrence: US)
  Receive Date: 20140207
  Receipt Date: 20140207
  Transmission Date: 20141002
  Serious: Yes (Other)
  Sender: FDA-Public Use
  Company Number: US-JNJFOC-20140200078

PATIENT
  Age: 28 Year
  Sex: Male

DRUGS (2)
  1. XARELTO [Suspect]
     Indication: SHOULDER OPERATION
     Route: 048
  2. HYDROCODONE [Concomitant]
     Route: 065

REACTIONS (2)
  - Haematoma [Unknown]
  - Pulmonary embolism [Unknown]
